FAERS Safety Report 20166680 (Version 1)
Quarter: 2021Q4

REPORT INFORMATION
  Report Type: Spontaneous
  Country: US (occurrence: US)
  Receive Date: 20211209
  Receipt Date: 20211209
  Transmission Date: 20220304
  Serious: Yes (Other)
  Sender: FDA-Public Use
  Company Number: US-SA-SAC20211208000227

PATIENT
  Sex: Male

DRUGS (7)
  1. TAXOTERE [Suspect]
     Active Substance: DOCETAXEL
     Dosage: UNK
     Dates: start: 20200421
  2. TAXOTERE [Suspect]
     Active Substance: DOCETAXEL
     Dosage: UNK
     Dates: start: 20211025
  3. ENZALUTAMIDE [Concomitant]
     Active Substance: ENZALUTAMIDE
     Dosage: 160 MG, QD
     Dates: start: 20201001
  4. ABIRATERONE [Concomitant]
     Active Substance: ABIRATERONE
     Dates: start: 20210507
  5. PREDNISONE [Concomitant]
     Active Substance: PREDNISONE
     Dates: start: 20210507
  6. ATEZOLIZUMAB [Concomitant]
     Active Substance: ATEZOLIZUMAB
     Dates: start: 20210817
  7. CABOZANTINIB [Concomitant]
     Active Substance: CABOZANTINIB
     Dates: start: 20210817

REACTIONS (5)
  - Metastases to bone [Unknown]
  - Lymphadenopathy [Unknown]
  - Spinal cord compression [Unknown]
  - Prostatic specific antigen abnormal [Unknown]
  - Retroperitoneal lymphadenopathy [Unknown]
